FAERS Safety Report 5216942-3 (Version None)
Quarter: 2007Q1

REPORT INFORMATION
  Report Type: 
  Country: None (occurrence: None)
  Receive Date: 20070119
  Receipt Date: 20040110
  Transmission Date: 20070707
  Serious: Yes (Hospitalization)
  Sender: FDA-Public Use
  Company Number: GXKR2007CA00697

PATIENT
  Age: 35 Year
  Sex: Male

DRUGS (1)
  1. BROMOCRIPTINE (NGX) (BROMOCRIPTINE) UNKNOWN [Suspect]
     Indication: HEADACHE

REACTIONS (2)
  - CONDITION AGGRAVATED [None]
  - SUNCT SYNDROME [None]
